FAERS Safety Report 8443723-X (Version None)
Quarter: 2012Q2

REPORT INFORMATION
  Report Type: 
  Country: None (occurrence: None)
  Receive Date: 20120618
  Receipt Date: 20120607
  Transmission Date: 20120825
  Serious: Yes (Hospitalization)
  Sender: FDA-Public Use
  Company Number: FR-ELI_LILLY_AND_COMPANY-FR201206002002

PATIENT
  Sex: Female

DRUGS (2)
  1. PROZAC [Suspect]
     Dosage: 20 MG, QD
     Route: 048
     Dates: start: 20120301, end: 20120413
  2. CITALOPRAM HYDROBROMIDE [Concomitant]
     Dosage: 1 DF, UNK
     Dates: start: 19920101, end: 20120301

REACTIONS (5)
  - CACHEXIA [None]
  - HEADACHE [None]
  - GENERAL PHYSICAL CONDITION [None]
  - DECREASED APPETITE [None]
  - NAUSEA [None]
